FAERS Safety Report 22645765 (Version 1)
Quarter: 2023Q2

REPORT INFORMATION
  Report Type: Spontaneous
  Country: MX (occurrence: MX)
  Receive Date: 20230627
  Receipt Date: 20230627
  Transmission Date: 20230722
  Serious: Yes (Hospitalization, Other)
  Sender: FDA-Public Use
  Company Number: MX-NOVOPROD-1081536

PATIENT
  Age: 42 Year
  Sex: Male
  Weight: 90.5 kg

DRUGS (3)
  1. NOVOEIGHT [Suspect]
     Active Substance: ANTIHEMOPHILIC FACTOR, HUMAN RECOMBINANT
     Indication: Factor VIII deficiency
     Dosage: 10000 UI EVERY 72 HOURS
     Dates: start: 2020
  2. NOVOEIGHT [Suspect]
     Active Substance: ANTIHEMOPHILIC FACTOR, HUMAN RECOMBINANT
     Dosage: EVERY 8 HOURS
     Dates: start: 20230616
  3. NOVOEIGHT [Suspect]
     Active Substance: ANTIHEMOPHILIC FACTOR, HUMAN RECOMBINANT
     Indication: Prophylaxis
     Dosage: 250 IU ONE HOUR BEFORE ENTERING SURGERY AND 250 IU (POSSIBLY MORE) ONE HOUR AFTER
     Dates: start: 20230612

REACTIONS (1)
  - Chondropathy [Unknown]

NARRATIVE: CASE EVENT DATE: 20220101
